FAERS Safety Report 9226311 (Version 1)
Quarter: 2013Q2

REPORT INFORMATION
  Report Type: Spontaneous
  Country: US (occurrence: US)
  Receive Date: 20130411
  Receipt Date: 20130411
  Transmission Date: 20140414
  Serious: Yes (Hospitalization)
  Sender: FDA-Public Use
  Company Number: US-B.I. PHARMACEUTICALS,INC./RIDGEFIELD-2013-BI-09519BP

PATIENT
  Sex: Female

DRUGS (3)
  1. PRADAXA [Suspect]
  2. PROMACTA [Concomitant]
     Route: 048
     Dates: start: 20100507
  3. PROMACTA [Concomitant]
     Route: 048

REACTIONS (1)
  - Cerebral thrombosis [Unknown]
